FAERS Safety Report 8979341 (Version 3)
Quarter: 2013Q2

REPORT INFORMATION
  Report Type: Spontaneous
  Country: BE (occurrence: BE)
  Receive Date: 20121221
  Receipt Date: 20130401
  Transmission Date: 20140414
  Serious: Yes (Other)
  Sender: FDA-Public Use
  Company Number: BE-BRISTOL-MYERS SQUIBB COMPANY-17136276

PATIENT
  Age: 74 Year
  Sex: Female

DRUGS (3)
  1. SPRYCEL [Suspect]
     Indication: CHRONIC MYELOID LEUKAEMIA
     Dosage: PREVIOUSLY 100MG/DAY?REDUCED ON OCT12
     Route: 048
     Dates: start: 201209
  2. MARCOUMAR [Interacting]
     Indication: CARDIAC FAILURE
     Route: 048
     Dates: start: 2007, end: 20121118
  3. MARCOUMAR [Interacting]
     Indication: ATRIAL FIBRILLATION
     Route: 048
     Dates: start: 2007, end: 20121118

REACTIONS (3)
  - Haematochezia [Recovered/Resolved]
  - Anaemia [Recovered/Resolved]
  - Drug interaction [Unknown]
